FAERS Safety Report 14419650 (Version 1)
Quarter: 2018Q1

REPORT INFORMATION
  Report Type: Spontaneous
  Country: US (occurrence: US)
  Receive Date: 20180121
  Receipt Date: 20180121
  Transmission Date: 20180509
  Serious: Yes (Disabling)
  Sender: FDA-Public Use
  Company Number: None

PATIENT
  Age: 63 Year
  Sex: Female
  Weight: 56.25 kg

DRUGS (5)
  1. IBUPROFEN. [Concomitant]
     Active Substance: IBUPROFEN
  2. MINOCYCLINE 50 MG TABLETS, 50 MG PAR [Suspect]
     Active Substance: MINOCYCLINE\MINOCYCLINE HYDROCHLORIDE
     Indication: RHEUMATOID ARTHRITIS
     Dosage: QUANTITY:1 CAPSULE(S);OTHER FREQUENCY:5 X PER WEEK;?
     Route: 048
     Dates: start: 20171001, end: 20171217
  3. VITAMIN D [Concomitant]
     Active Substance: CHOLECALCIFEROL
  4. GLUCOSAMINE WITH CHONDROITIN [Concomitant]
  5. MELATONIN [Concomitant]
     Active Substance: MELATONIN

REACTIONS (10)
  - Fatigue [None]
  - Arthralgia [None]
  - Product physical issue [None]
  - Job dissatisfaction [None]
  - Rheumatoid arthritis [None]
  - Product substitution issue [None]
  - Dry eye [None]
  - Pain [None]
  - Product colour issue [None]
  - Swelling [None]

NARRATIVE: CASE EVENT DATE: 20171109
